FAERS Safety Report 5132374-0 (Version None)
Quarter: 2006Q4

REPORT INFORMATION
  Report Type: 
  Country: None (occurrence: None)
  Receive Date: 20061017
  Receipt Date: 20061006
  Transmission Date: 20070319
  Serious: Yes (Life-Threatening)
  Sender: FDA-Public Use
  Company Number: 2006123624

PATIENT
  Age: 27 Year
  Sex: Female

DRUGS (4)
  1. ALPRAZOLAM [Suspect]
     Indication: PANIC DISORDER
     Dosage: ORAL
     Route: 048
  2. ROHYPNOL (FLUNITRAZEPAM) [Suspect]
     Indication: PANIC DISORDER
     Dosage: ORAL
     Route: 048
  3. PAXIL [Suspect]
     Indication: PANIC DISORDER
     Dosage: ORAL
     Route: 048
  4. MEILAX (ETHYL LOFLAZZEPATE) [Suspect]
     Dosage: ORAL
     Route: 048

REACTIONS (1)
  - DRUG HYPERSENSITIVITY [None]
